FAERS Safety Report 6479959-7 (Version None)
Quarter: 2009Q4

REPORT INFORMATION
  Report Type: 
  Country: None (occurrence: None)
  Receive Date: 20091208
  Receipt Date: 20091119
  Transmission Date: 20100525
  Serious: Yes (Other)
  Sender: FDA-Public Use
  Company Number: US-SANOFI-AVENTIS-2009SA003854

PATIENT
  Age: 54 Year
  Sex: Male

DRUGS (5)
  1. MULTAQ [Suspect]
     Indication: ATRIAL FIBRILLATION
     Route: 048
     Dates: start: 20090101
  2. COUMADIN [Suspect]
     Route: 048
     Dates: end: 20091026
  3. COUMADIN [Suspect]
     Route: 048
     Dates: start: 20091026, end: 20091028
  4. COUMADIN [Suspect]
     Route: 048
     Dates: start: 20091028, end: 20091104
  5. COUMADIN [Suspect]
     Route: 048
     Dates: start: 20091104

REACTIONS (1)
  - INTERNATIONAL NORMALISED RATIO INCREASED [None]
